FAERS Safety Report 4618204-1 (Version None)
Quarter: 2005Q1

REPORT INFORMATION
  Report Type: 
  Country: None (occurrence: None)
  Receive Date: 20050323
  Receipt Date: 20050303
  Transmission Date: 20050727
  Serious: Yes (Other)
  Sender: FDA-Public Use
  Company Number: EWC050343050

PATIENT
  Age: 10 Year
  Sex: Female
  Weight: 39 kg

DRUGS (2)
  1. ATOMOXETINE HYDROCHLORIDE [Suspect]
     Indication: ATTENTION DEFICIT/HYPERACTIVITY DISORDER
     Dosage: 45 MG DAY
     Dates: start: 20050204
  2. ATOMOXETINE HYDROCHLORIDE [Suspect]
     Indication: OPPOSITIONAL DEFIANT DISORDER
     Dosage: 45 MG DAY
     Dates: start: 20050204

REACTIONS (10)
  - ABDOMINAL PAIN [None]
  - CONDITION AGGRAVATED [None]
  - CRYING [None]
  - FEELING ABNORMAL [None]
  - IRRITABILITY [None]
  - MOOD SWINGS [None]
  - NAUSEA [None]
  - OVERDOSE [None]
  - SELF-MEDICATION [None]
  - SUICIDAL IDEATION [None]
